FAERS Safety Report 22198020 (Version 1)
Quarter: 2023Q2

REPORT INFORMATION
  Report Type: Spontaneous
  Country: CA (occurrence: CA)
  Receive Date: 20230411
  Receipt Date: 20230411
  Transmission Date: 20230721
  Serious: Yes (Life-Threatening, Hospitalization)
  Sender: FDA-Public Use
  Company Number: CA-BAYER-2022A030383

PATIENT
  Age: 52 Year
  Sex: Female
  Weight: 60 kg

DRUGS (23)
  1. XARELTO [Interacting]
     Active Substance: RIVAROXABAN
     Indication: Embolism venous
     Dosage: 20 MG, QD
     Route: 048
  2. XARELTO [Concomitant]
     Active Substance: RIVAROXABAN
  3. BACLOFEN [Concomitant]
     Active Substance: BACLOFEN
  4. CELLCEPT [Concomitant]
     Active Substance: MYCOPHENOLATE MOFETIL
  5. DILANTIN [Concomitant]
     Active Substance: PHENYTOIN
  6. DOMPERIDONE [Concomitant]
     Active Substance: DOMPERIDONE
  7. FUCIDIN (FUSIDIC ACID) [Concomitant]
     Active Substance: FUSIDIC ACID
  8. GABAPENTIN [Concomitant]
     Active Substance: GABAPENTIN
  9. HYDROMORPHONE [Concomitant]
     Active Substance: HYDROMORPHONE
  10. HYDROXYCHLOROQUINE [Concomitant]
     Active Substance: HYDROXYCHLOROQUINE
  11. POLYETHYLENE GLYCOLS [Concomitant]
     Active Substance: POLYETHYLENE GLYCOLS
     Route: 048
  12. LIDOCAINE [Concomitant]
     Active Substance: LIDOCAINE
  13. METOCLOPRAMIDE HYDROCHLORIDE [Concomitant]
     Active Substance: METOCLOPRAMIDE HYDROCHLORIDE
  14. MYRBETRIQ [Concomitant]
     Active Substance: MIRABEGRON
  15. NAPROSYN [Concomitant]
     Active Substance: NAPROXEN
  16. NITROLINGUAL [Concomitant]
     Active Substance: NITROGLYCERIN
  17. PREDNISONE [Concomitant]
     Active Substance: PREDNISONE
  18. PREMARIN [Concomitant]
     Active Substance: ESTROGENS, CONJUGATED
  19. PYRIDIUM [Concomitant]
     Active Substance: PHENAZOPYRIDINE
  20. SEROQUEL XR [Concomitant]
     Active Substance: QUETIAPINE FUMARATE
  21. SERTRALINE [Concomitant]
     Active Substance: SERTRALINE HYDROCHLORIDE
  22. PANTOPRAZOLE MAGNESIUM [Concomitant]
     Active Substance: PANTOPRAZOLE MAGNESIUM
  23. VITAMIN D NOS [Concomitant]
     Active Substance: VITAMIN D NOS

REACTIONS (5)
  - Pericardial effusion [Recovering/Resolving]
  - Pulmonary embolism [Recovering/Resolving]
  - Systemic lupus erythematosus [Recovering/Resolving]
  - Dyspnoea exertional [Recovering/Resolving]
  - Inhibitory drug interaction [Recovering/Resolving]
